FAERS Safety Report 9217323 (Version 2)
Quarter: 2013Q2

REPORT INFORMATION
  Report Type: Spontaneous
  Country: US (occurrence: US)
  Receive Date: 20130408
  Receipt Date: 20130509
  Transmission Date: 20140414
  Serious: Yes (Hospitalization, Other)
  Sender: FDA-Public Use
  Company Number: US-CELGENEUS-163-21880-13034750

PATIENT
  Age: 83 Year
  Sex: Female

DRUGS (7)
  1. REVLIMID [Suspect]
     Indication: PLASMA CELL MYELOMA
     Dosage: 5 MILLIGRAM
     Route: 048
     Dates: start: 201303
  2. PROTONIX [Concomitant]
     Indication: PRODUCT USED FOR UNKNOWN INDICATION
     Dosage: 40 MILLIGRAM
     Route: 065
  3. DECADRON [Concomitant]
     Indication: PRODUCT USED FOR UNKNOWN INDICATION
     Dosage: 5 TABS IN 2 DIVIDED DAYS WEEKLY
     Route: 048
  4. LASIX [Concomitant]
     Indication: PRODUCT USED FOR UNKNOWN INDICATION
     Route: 065
  5. ARICEPT [Concomitant]
     Indication: DEMENTIA
     Route: 065
  6. NAMENDA [Concomitant]
     Indication: DEMENTIA
     Route: 065
  7. AREDIA [Concomitant]
     Indication: HYPERCALCAEMIA
     Dosage: 2 MILLIGRAM
     Route: 041

REACTIONS (4)
  - Asthenia [Unknown]
  - Anaemia [Unknown]
  - Oedema peripheral [Unknown]
  - Atrial fibrillation [Unknown]
